FAERS Safety Report 4488701-0 (Version None)
Quarter: 2004Q4

REPORT INFORMATION
  Report Type: 
  Country: None (occurrence: None)
  Receive Date: 20041025
  Receipt Date: 20041014
  Transmission Date: 20050328
  Serious: Yes (Life-Threatening, Hospitalization)
  Sender: FDA-Public Use
  Company Number: DE-2004-033614

PATIENT
  Age: 40 Year
  Sex: Male
  Weight: 75 kg

DRUGS (2)
  1. CAMPATH [Suspect]
     Indication: LIVER TRANSPLANT
     Dosage: 20, INTRAVENOUS
     Route: 042
     Dates: start: 20040907, end: 20040908
  2. TACROLIMUS (TACROLIMUS) [Concomitant]

REACTIONS (2)
  - DIALYSIS [None]
  - HEPATIC ARTERY OCCLUSION [None]
